FAERS Safety Report 8600614-9 (Version None)
Quarter: 2012Q3

REPORT INFORMATION
  Report Type: 
  Country: None (occurrence: None)
  Receive Date: 20120817
  Receipt Date: 20120813
  Transmission Date: 20120928
  Serious: Yes (Hospitalization)
  Sender: FDA-Public Use
  Company Number: BR-ABBOTT-12P-020-0958115-00

PATIENT
  Sex: Male
  Weight: 110 kg

DRUGS (3)
  1. HUMIRA [Suspect]
     Indication: PSORIATIC ARTHROPATHY
     Route: 058
     Dates: start: 20120528
  2. METHOTREXATE [Concomitant]
     Indication: ARTHRITIS
     Dosage: 5 TABLETS PER WEEK
     Route: 048
  3. PREDNISONE TAB [Concomitant]
     Indication: ARTHRITIS
     Dosage: HALF TABLET PER DAY
     Route: 048

REACTIONS (2)
  - GASTRITIS [None]
  - GASTROINTESTINAL INFLAMMATION [None]
